FAERS Safety Report 13889240 (Version 1)
Quarter: 2017Q3

REPORT INFORMATION
  Report Type: Spontaneous
  Country: US (occurrence: US)
  Receive Date: 20170822
  Receipt Date: 20170822
  Transmission Date: 20171127
  Serious: No
  Sender: FDA-Public Use
  Company Number: US-ROCHE-1089143

PATIENT
  Sex: Female

DRUGS (6)
  1. TOCILIZUMAB. [Suspect]
     Active Substance: TOCILIZUMAB
     Indication: PRODUCT USED FOR UNKNOWN INDICATION
     Route: 065
  2. TOCILIZUMAB. [Suspect]
     Active Substance: TOCILIZUMAB
     Route: 065
  3. ABATACEPT [Concomitant]
     Active Substance: ABATACEPT
  4. ENBREL (NON-ROCHE/NON-COMPARATOR) [Concomitant]
  5. RITUXIMAB. [Concomitant]
     Active Substance: RITUXIMAB
  6. REMICADE [Concomitant]
     Active Substance: INFLIXIMAB

REACTIONS (1)
  - Neutropenia [Unknown]
